FAERS Safety Report 23506566 (Version 1)
Quarter: 2024Q1

REPORT INFORMATION
  Report Type: Spontaneous
  Country: US (occurrence: US)
  Receive Date: 20240209
  Receipt Date: 20240209
  Transmission Date: 20240409
  Serious: Yes (Other)
  Sender: FDA-Public Use
  Company Number: US-BEH-2024168271

PATIENT
  Sex: Male

DRUGS (16)
  1. HIZENTRA [Suspect]
     Active Substance: HUMAN IMMUNOGLOBULIN G
     Indication: Immunodeficiency common variable
     Dosage: 4 GRAM, QW
     Route: 058
     Dates: start: 20231201
  2. DIPHENHYDRAMINE [Concomitant]
     Active Substance: DIPHENHYDRAMINE
     Dosage: 50 MILLIGRAM
  3. EPINEPHRINE [Concomitant]
     Active Substance: EPINEPHRINE
     Dosage: 0.3 MILLIGRAM
  4. FLUTICASONE [Concomitant]
     Active Substance: FLUTICASONE
  5. IBUPROFEN [Concomitant]
     Active Substance: IBUPROFEN
     Dosage: 200 MILLIGRAM
  6. JARRO DOPHILUS [Concomitant]
  7. LEUCOVORIN CALCIUM [Concomitant]
     Active Substance: LEUCOVORIN CALCIUM
  8. LORATADINE [Concomitant]
     Active Substance: LORATADINE
     Dosage: 10 MILLIGRAM
  9. MAGNESIUM CITRATE [Concomitant]
     Active Substance: MAGNESIUM CITRATE
  10. METHOTREXATE [Concomitant]
     Active Substance: METHOTREXATE
     Dosage: 2.5 MILLIGRAM
  11. ACETYLCYSTEINE [Concomitant]
     Active Substance: ACETYLCYSTEINE
  12. OMEGA 3 AGE DEFENCE [Concomitant]
     Dosage: 1200 MILLIGRAM
  13. RELAX + SLEEP [HUMULUS LUPULUS;NEPETA CATARIA;PASSIFLORA INCARNATA;VAL [Concomitant]
  14. UBIQUINOL [Concomitant]
     Active Substance: UBIQUINOL
     Dosage: 100 MILLIGRAM
  15. VITAMIN B12 [Concomitant]
     Active Substance: CYANOCOBALAMIN
     Dosage: 1000 MICROGRAM
  16. VITAMIN D3 [Concomitant]
     Active Substance: CHOLECALCIFEROL

REACTIONS (4)
  - Drug ineffective [Unknown]
  - No adverse event [Unknown]
  - Product dose omission issue [Unknown]
  - Illness [Unknown]
